FAERS Safety Report 5339601-5 (Version None)
Quarter: 2007Q2

REPORT INFORMATION
  Report Type: 
  Country: None (occurrence: None)
  Receive Date: 20070525
  Receipt Date: 20070525
  Transmission Date: 20071010
  Serious: No
  Sender: FDA-Public Use
  Company Number: None

PATIENT

DRUGS (2)
  1. APLISOL [Suspect]
     Indication: SKIN TEST
     Dates: start: 20070101, end: 20070315
  2. APLISOL [Suspect]
     Indication: TUBERCULIN TEST
     Dates: start: 20070101, end: 20070315

REACTIONS (6)
  - HYPERSENSITIVITY [None]
  - INJECTION SITE ERYTHEMA [None]
  - INJECTION SITE INDURATION [None]
  - INJECTION SITE PRURITUS [None]
  - INJECTION SITE WARMTH [None]
  - PHARMACEUTICAL PRODUCT COMPLAINT [None]
